FAERS Safety Report 5716449-0 (Version None)
Quarter: 2008Q2

REPORT INFORMATION
  Report Type: 
  Country: None (occurrence: None)
  Receive Date: 20080424
  Receipt Date: 20080416
  Transmission Date: 20081010
  Serious: Yes (Death, Hospitalization, Other)
  Sender: FDA-Public Use
  Company Number: US-AVENTIS-200812386GDDC

PATIENT
  Age: 80 Year
  Sex: Male
  Weight: 71.67 kg

DRUGS (13)
  1. DOCETAXEL [Suspect]
     Indication: NON-SMALL CELL LUNG CANCER STAGE IV
     Route: 042
     Dates: start: 20080122, end: 20080122
  2. SORAFENIB [Suspect]
     Indication: NON-SMALL CELL LUNG CANCER STAGE IV
     Route: 048
     Dates: start: 20071126, end: 20080122
  3. CARBOPLATIN [Suspect]
     Indication: NON-SMALL CELL LUNG CANCER STAGE IV
     Dosage: DOSE: AUC 6
     Dates: start: 20071126, end: 20071126
  4. CARBOPLATIN [Suspect]
     Dosage: DOSE: AUC 5
     Dates: start: 20071231, end: 20071231
  5. CARBOPLATIN [Suspect]
     Dosage: DOSE: AUC 5
     Dates: start: 20080121, end: 20080121
  6. ASPIRIN [Concomitant]
     Indication: CORONARY ARTERY DISEASE
     Route: 048
  7. ROBITUSSIN AC [Concomitant]
     Indication: COUGH
     Dosage: DOSE: 5-10 CC EVERY 6 HOURS
     Route: 048
  8. DEXAMETHASONE TAB [Concomitant]
     Indication: FATIGUE
     Route: 048
  9. CRESTOR [Concomitant]
     Indication: HYPERLIPIDAEMIA
     Route: 048
  10. LISINOPRIL [Concomitant]
     Indication: HYPERTENSION
     Route: 048
  11. METOPROLOL TARTRATE [Concomitant]
     Indication: CORONARY ARTERY DISEASE
     Route: 048
  12. ZITHROMAX [Concomitant]
     Indication: BRONCHITIS
     Dosage: DOSE: 250 MG FOR 5 DAYS
  13. NEULASTA [Concomitant]
     Route: 058

REACTIONS (10)
  - DEEP VEIN THROMBOSIS [None]
  - FEBRILE NEUTROPENIA [None]
  - HYPOTENSION [None]
  - NON-SMALL CELL LUNG CANCER STAGE IV [None]
  - OXYGEN SATURATION DECREASED [None]
  - PANCYTOPENIA [None]
  - PNEUMONIA ASPIRATION [None]
  - PNEUMOTHORAX [None]
  - RESPIRATORY DISTRESS [None]
  - SEPSIS [None]
